FAERS Safety Report 9238057 (Version 2)
Quarter: 2013Q2

REPORT INFORMATION
  Report Type: Spontaneous
  Country: FR (occurrence: FR)
  Receive Date: 20130418
  Receipt Date: 20130424
  Transmission Date: 20140414
  Serious: Yes (Death)
  Sender: FDA-Public Use
  Company Number: FR-B.I. PHARMACEUTICALS,INC./RIDGEFIELD-2013-FF-01141FF

PATIENT
  Age: 82 Year
  Sex: Male
  Weight: 80 kg

DRUGS (7)
  1. PRADAXA [Suspect]
     Indication: ATRIAL FIBRILLATION
     Dosage: 220 MG
     Route: 048
     Dates: start: 201209
  2. SINGULAIR [Concomitant]
  3. NEURONTIN [Concomitant]
  4. FORZAAR [Concomitant]
  5. ISOPTINE [Concomitant]
  6. SIMVASTATINE [Concomitant]
  7. CYMBALTA [Concomitant]

REACTIONS (1)
  - Cerebral haematoma [Fatal]
